FAERS Safety Report 6851173-2 (Version None)
Quarter: 2010Q3

REPORT INFORMATION
  Report Type: 
  Country: None (occurrence: None)
  Receive Date: 20100716
  Receipt Date: 20100712
  Transmission Date: 20110219
  Serious: Yes (Death, Hospitalization, Other)
  Sender: FDA-Public Use
  Company Number: US-ELI_LILLY_AND_COMPANY-US201006006850

PATIENT
  Sex: Female
  Weight: 57.143 kg

DRUGS (12)
  1. ALIMTA [Suspect]
     Dosage: 825 MG, UNK
     Dates: start: 20100401, end: 20100512
  2. FOLIC ACID [Concomitant]
  3. VITAMIN B-12 [Concomitant]
  4. MORPHINE [Concomitant]
  5. DILTIAZEM [Concomitant]
  6. XANAX [Concomitant]
  7. ZOFRAN [Concomitant]
  8. AUGMENTIN '125' [Concomitant]
  9. DECADRON [Concomitant]
  10. POTASSIUM CHLORIDE [Concomitant]
  11. FLAGYL [Concomitant]
  12. VICODIN [Concomitant]

REACTIONS (9)
  - BRONCHIAL OBSTRUCTION [None]
  - DIZZINESS [None]
  - FATIGUE [None]
  - LEUKOCYTOSIS [None]
  - MALIGNANT NEOPLASM PROGRESSION [None]
  - OFF LABEL USE [None]
  - PLEURAL EFFUSION [None]
  - RADIATION PNEUMONITIS [None]
  - TACHYCARDIA [None]
